FAERS Safety Report 6985187-9 (Version None)
Quarter: 2010Q3

REPORT INFORMATION
  Report Type: 
  Country: None (occurrence: None)
  Receive Date: 20100915
  Receipt Date: 20100901
  Transmission Date: 20110219
  Serious: Yes (Hospitalization, Other)
  Sender: FDA-Public Use
  Company Number: PHHY2009FR31362

PATIENT
  Sex: Female
  Weight: 46 kg

DRUGS (3)
  1. CGP 57148B T35717+ [Suspect]
     Dosage: 400 MG DAILY
     Dates: start: 20080808
  2. CGP 57148B T35717+ [Suspect]
     Dosage: 300 MG DAILY
     Dates: start: 20080922, end: 20090324
  3. CGP 57148B T35717+ [Suspect]
     Dosage: 200 MG DAILY
     Dates: start: 20090409

REACTIONS (21)
  - ALOPECIA [None]
  - ANAEMIA MACROCYTIC [None]
  - BICYTOPENIA [None]
  - BLOOD CREATININE INCREASED [None]
  - BLOOD DISORDER [None]
  - EXTRAPYRAMIDAL DISORDER [None]
  - FOLATE DEFICIENCY [None]
  - GENERAL PHYSICAL HEALTH DETERIORATION [None]
  - HAEMOGLOBIN DECREASED [None]
  - INTERVERTEBRAL DISC COMPRESSION [None]
  - MALNUTRITION [None]
  - MOVEMENT DISORDER [None]
  - NEUTROPENIA [None]
  - OEDEMA [None]
  - OEDEMA PERIPHERAL [None]
  - OSTEOARTHRITIS [None]
  - OSTEOPOROTIC FRACTURE [None]
  - PRURIGO [None]
  - RENAL FAILURE ACUTE [None]
  - TOXIC SKIN ERUPTION [None]
  - WEIGHT DECREASED [None]
